FAERS Safety Report 6157816-3 (Version None)
Quarter: 2009Q2

REPORT INFORMATION
  Report Type: 
  Country: None (occurrence: None)
  Receive Date: 20090414
  Receipt Date: 20090402
  Transmission Date: 20091009
  Serious: No
  Sender: FDA-Public Use
  Company Number: 2009-194318-NL

PATIENT
  Sex: Female

DRUGS (1)
  1. FOLLITROPIN BETA [Suspect]
     Dosage: DF

REACTIONS (1)
  - TUMOUR MARKER INCREASED [None]
